FAERS Safety Report 15369381 (Version 5)
Quarter: 2018Q4

REPORT INFORMATION
  Report Type: Report from Study
  Country: US (occurrence: US)
  Receive Date: 20180911
  Receipt Date: 20181022
  Transmission Date: 20190204
  Serious: Yes (Hospitalization)
  Sender: FDA-Public Use
  Company Number: US-ROCHE-2182357

PATIENT
  Age: 31 Year
  Sex: Female

DRUGS (59)
  1. CYCLOPHOSPHAMIDE. [Suspect]
     Active Substance: CYCLOPHOSPHAMIDE
     Route: 065
     Dates: start: 20170317
  2. SOLU-MEDROL [Suspect]
     Active Substance: METHYLPREDNISOLONE SODIUM SUCCINATE
     Indication: LUPUS NEPHRITIS
     Route: 065
  3. MESNA. [Concomitant]
     Active Substance: MESNA
     Route: 065
  4. SOLU-MEDROL [Concomitant]
     Active Substance: METHYLPREDNISOLONE SODIUM SUCCINATE
     Route: 042
     Dates: start: 20170303
  5. SOLU-MEDROL [Concomitant]
     Active Substance: METHYLPREDNISOLONE SODIUM SUCCINATE
     Route: 042
     Dates: start: 20170317
  6. RITUXIMAB. [Suspect]
     Active Substance: RITUXIMAB
     Indication: LUPUS NEPHRITIS
     Dosage: 50 MG/HR
     Route: 065
     Dates: start: 20170303
  7. RITUXIMAB. [Suspect]
     Active Substance: RITUXIMAB
     Dosage: 100 MG /HR
     Route: 065
     Dates: start: 20170317
  8. PREDNISONE. [Suspect]
     Active Substance: PREDNISONE
     Route: 048
     Dates: end: 20180910
  9. NEXPLANON [Concomitant]
     Active Substance: ETONOGESTREL
     Indication: SLE ARTHRITIS
     Route: 065
     Dates: start: 2015
  10. FERROUS SULFATE. [Concomitant]
     Active Substance: FERROUS SULFATE
     Indication: ANAEMIA
     Route: 065
     Dates: start: 20170225
  11. LASIX [Concomitant]
     Active Substance: FUROSEMIDE
     Route: 065
     Dates: start: 20170310, end: 20170328
  12. RITUXIMAB. [Suspect]
     Active Substance: RITUXIMAB
     Dosage: 300 MG/HR
     Route: 065
     Dates: start: 20170317
  13. PREDNISONE. [Suspect]
     Active Substance: PREDNISONE
     Indication: LUPUS NEPHRITIS
     Route: 048
     Dates: start: 20170304, end: 20170316
  14. PREDNISONE. [Suspect]
     Active Substance: PREDNISONE
     Route: 048
     Dates: start: 20170428, end: 20170504
  15. PREDNISONE. [Suspect]
     Active Substance: PREDNISONE
     Route: 048
     Dates: start: 20170519
  16. PREDNISONE. [Suspect]
     Active Substance: PREDNISONE
     Route: 048
     Dates: start: 20170225, end: 20170303
  17. WARFARIN [Concomitant]
     Active Substance: WARFARIN
     Route: 065
  18. CELLCEPT [Concomitant]
     Active Substance: MYCOPHENOLATE MOFETIL\MYCOPHENOLATE MOFETIL HYDROCHLORIDE
     Route: 048
     Dates: start: 2015, end: 20170225
  19. MESNA. [Concomitant]
     Active Substance: MESNA
     Dosage: ONCE
     Route: 065
     Dates: start: 20170303, end: 20170303
  20. ACETAMINOPHEN. [Concomitant]
     Active Substance: ACETAMINOPHEN
     Route: 048
     Dates: start: 20170317
  21. RITUXIMAB. [Suspect]
     Active Substance: RITUXIMAB
     Dosage: 300 MG/HR
     Route: 065
     Dates: start: 20170303
  22. PREDNISONE. [Suspect]
     Active Substance: PREDNISONE
     Route: 048
     Dates: start: 20170421, end: 20170427
  23. PREDNISONE. [Suspect]
     Active Substance: PREDNISONE
     Route: 048
     Dates: start: 20170505, end: 20170511
  24. OMEPRAZOLE. [Concomitant]
     Active Substance: OMEPRAZOLE
     Indication: GASTROOESOPHAGEAL REFLUX DISEASE
     Route: 048
  25. BACTRIM [Concomitant]
     Active Substance: SULFAMETHOXAZOLE\TRIMETHOPRIM
     Route: 065
     Dates: start: 20170308, end: 20170309
  26. LOSARTAN. [Concomitant]
     Active Substance: LOSARTAN
     Indication: HYPERTENSION
     Route: 065
     Dates: start: 20170329
  27. MYCOPHENOLATE [Concomitant]
     Active Substance: MYCOPHENOLIC ACID
  28. RITUXIMAB. [Suspect]
     Active Substance: RITUXIMAB
     Dosage: 150 MG /HR
     Route: 065
     Dates: start: 20170303
  29. RITUXIMAB. [Suspect]
     Active Substance: RITUXIMAB
     Dosage: 200 MG/HR
     Route: 065
     Dates: start: 20170317
  30. CYCLOPHOSPHAMIDE. [Suspect]
     Active Substance: CYCLOPHOSPHAMIDE
     Indication: LUPUS NEPHRITIS
     Route: 065
     Dates: start: 20180303
  31. PREDNISONE. [Suspect]
     Active Substance: PREDNISONE
     Route: 048
  32. BELIMUMAB [Suspect]
     Active Substance: BELIMUMAB
     Indication: LUPUS NEPHRITIS
     Route: 065
  33. CHOLECALCIFEROL [Concomitant]
     Active Substance: CHOLECALCIFEROL
     Route: 048
     Dates: start: 20170225
  34. NEXPLANON [Concomitant]
     Active Substance: ETONOGESTREL
     Indication: CONTRACEPTION
     Route: 058
     Dates: start: 2014
  35. LASIX [Concomitant]
     Active Substance: FUROSEMIDE
     Indication: SWELLING
     Route: 065
     Dates: start: 20170304, end: 20170307
  36. ONDANSETRON [Concomitant]
     Active Substance: ONDANSETRON
     Route: 042
     Dates: start: 20170303, end: 20170303
  37. LOVENOX [Concomitant]
     Active Substance: ENOXAPARIN SODIUM
     Indication: DEEP VEIN THROMBOSIS
     Route: 058
     Dates: start: 20170402
  38. DIPHENHYDRAMINE. [Concomitant]
     Active Substance: DIPHENHYDRAMINE
     Route: 048
     Dates: start: 20170317
  39. RITUXIMAB. [Suspect]
     Active Substance: RITUXIMAB
     Dosage: 400 MG/HR
     Route: 065
     Dates: start: 20170317
  40. WARFARIN [Concomitant]
     Active Substance: WARFARIN
     Indication: DEEP VEIN THROMBOSIS
     Route: 065
  41. ADALAT CC [Concomitant]
     Active Substance: NIFEDIPINE
     Indication: HYPERTENSION
     Route: 065
     Dates: start: 20170225
  42. RITUXIMAB. [Suspect]
     Active Substance: RITUXIMAB
     Dosage: 100 MG/HR
     Route: 065
     Dates: start: 20170303
  43. RITUXIMAB. [Suspect]
     Active Substance: RITUXIMAB
     Dosage: 350 MG/HR
     Route: 065
     Dates: start: 20170303
  44. PREDNISONE. [Suspect]
     Active Substance: PREDNISONE
     Route: 048
     Dates: start: 20170318, end: 20170330
  45. PREDNISONE. [Suspect]
     Active Substance: PREDNISONE
     Route: 048
     Dates: start: 20170512, end: 20170518
  46. WARFARIN [Concomitant]
     Active Substance: WARFARIN
     Route: 048
     Dates: start: 20170413
  47. WARFARIN [Concomitant]
     Active Substance: WARFARIN
     Route: 065
     Dates: start: 20170413
  48. MESNA. [Concomitant]
     Active Substance: MESNA
     Route: 065
     Dates: start: 20170317
  49. DIPHENHYDRAMINE. [Concomitant]
     Active Substance: DIPHENHYDRAMINE
     Route: 048
     Dates: start: 20170303
  50. ACETAMINOPHEN. [Concomitant]
     Active Substance: ACETAMINOPHEN
     Route: 048
     Dates: start: 20170303
  51. RITUXIMAB. [Suspect]
     Active Substance: RITUXIMAB
     Dosage: 200 MG/HR
     Route: 065
     Dates: start: 20170303
  52. RITUXIMAB. [Suspect]
     Active Substance: RITUXIMAB
     Dosage: 250 MG/HR
     Route: 065
     Dates: start: 20170303
  53. RITUXIMAB. [Suspect]
     Active Substance: RITUXIMAB
     Dosage: 400 MG/HR
     Route: 065
     Dates: start: 20170303
  54. PREDNISONE. [Suspect]
     Active Substance: PREDNISONE
     Route: 048
     Dates: start: 20170331, end: 20170413
  55. PREDNISONE. [Suspect]
     Active Substance: PREDNISONE
     Route: 048
     Dates: start: 20170414, end: 20170420
  56. METHYLPREDNISOLONE. [Concomitant]
     Active Substance: METHYLPREDNISOLONE
     Route: 042
     Dates: start: 20170222, end: 20170224
  57. ONDANSETRON [Concomitant]
     Active Substance: ONDANSETRON
     Route: 042
     Dates: start: 20170317, end: 20170317
  58. PANTOPRAZOLE [Concomitant]
     Active Substance: PANTOPRAZOLE
     Route: 065
     Dates: start: 20170320, end: 201706
  59. TRAMADOL. [Concomitant]
     Active Substance: TRAMADOL
     Route: 048
     Dates: start: 20170317

REACTIONS (1)
  - Osteonecrosis [Recovered/Resolved with Sequelae]

NARRATIVE: CASE EVENT DATE: 20180719
